FAERS Safety Report 9504444 (Version 2)
Quarter: 2014Q1

REPORT INFORMATION
  Report Type: Report from Study
  Country: US (occurrence: US)
  Receive Date: 20130906
  Receipt Date: 20140207
  Transmission Date: 20141002
  Serious: Yes (Other)
  Sender: FDA-Public Use
  Company Number: US-PURDUE-USA-2013-0105962

PATIENT
  Age: 36 Year
  Sex: Male

DRUGS (1)
  1. OXYCONTIN (NDA 22-272) [Suspect]
     Indication: PRODUCT USED FOR UNKNOWN INDICATION
     Dosage: 80 MG, TAKE 5 TABLETS EVERY MORNING AND 4 TABLETS EVERY EVENING
     Route: 048

REACTIONS (6)
  - Intervertebral disc protrusion [Not Recovered/Not Resolved]
  - Intervertebral disc operation [Unknown]
  - Road traffic accident [Unknown]
  - Surgery [Recovered/Resolved]
  - Migraine [Not Recovered/Not Resolved]
  - Procedural pain [Unknown]
